FAERS Safety Report 15276314 (Version 1)
Quarter: 2018Q3

REPORT INFORMATION
  Report Type: Spontaneous
  Country: US (occurrence: US)
  Receive Date: 20180728
  Receipt Date: 20180728
  Transmission Date: 20181010
  Serious: Yes (Disabling)
  Sender: FDA-Public Use
  Company Number: None

PATIENT
  Age: 48 Year
  Sex: Male
  Weight: 63 kg

DRUGS (6)
  1. CITALOPRAM 10MG 1X DAY [Suspect]
     Active Substance: CITALOPRAM HYDROBROMIDE
     Indication: ANXIETY
     Route: 048
     Dates: start: 20180515, end: 20180722
  2. CERERIZINE [Concomitant]
  3. CITALOPRAM 10MG 1X DAY [Suspect]
     Active Substance: CITALOPRAM HYDROBROMIDE
     Indication: DEPRESSION
     Route: 048
     Dates: start: 20180515, end: 20180722
  4. SERTRALINE 50MG 2 PILLS 1X DAY [Suspect]
     Active Substance: SERTRALINE HYDROCHLORIDE
     Indication: ANXIETY
     Dosage: ?          QUANTITY:2 DF DOSAGE FORM;?
     Route: 048
  5. QUETIAPINE. [Concomitant]
     Active Substance: QUETIAPINE
  6. SERTRALINE 50MG 2 PILLS 1X DAY [Suspect]
     Active Substance: SERTRALINE HYDROCHLORIDE
     Indication: DEPRESSION
     Dosage: ?          QUANTITY:2 DF DOSAGE FORM;?
     Route: 048

REACTIONS (20)
  - Cognitive disorder [None]
  - Apathy [None]
  - Headache [None]
  - Dyspnoea [None]
  - Formication [None]
  - Gait disturbance [None]
  - Eructation [None]
  - Hallucination [None]
  - Therapy change [None]
  - Memory impairment [None]
  - Neck pain [None]
  - Agitation [None]
  - Dizziness [None]
  - Dysphagia [None]
  - Impaired work ability [None]
  - Disturbance in attention [None]
  - Facial pain [None]
  - Tremor [None]
  - Paranoia [None]
  - Fear of death [None]

NARRATIVE: CASE EVENT DATE: 20180515
